FAERS Safety Report 9995742 (Version 1)
Quarter: 2014Q1

REPORT INFORMATION
  Report Type: Spontaneous
  Country: US (occurrence: None)
  Receive Date: 20140225
  Receipt Date: 20140225
  Transmission Date: 20141002
  Serious: Yes (Hospitalization)
  Sender: FDA-Public Use
  Company Number: 2013-US-001221

PATIENT
  Age: 59 Year
  Sex: Female
  Weight: 49.9 kg

DRUGS (8)
  1. PRIALT [Suspect]
     Indication: POST LAMINECTOMY SYNDROME
     Dosage: UNK MG, SINGLE , INTRATHECAL
     Route: 037
  2. PRIALT [Suspect]
     Indication: PAIN
     Dosage: UNK MG, SINGLE , INTRATHECAL
     Route: 037
  3. NORTRIPTYLINE HCL (NORTRIPTYLINE HYDROCHLORIDE) [Concomitant]
  4. BACLOFEN (BACLOFEN) [Concomitant]
  5. METHADONE HCL (METHADONE HYDROCHLORIDE) [Concomitant]
  6. ACETAMINOPHEN (PARACETAMOL) [Concomitant]
  7. SIMVASTATIN (SIMVASTATIN) [Concomitant]
  8. FENTANYL (FENTANYL CITRATE) [Concomitant]

REACTIONS (6)
  - Depression [None]
  - Mood swings [None]
  - Performance status decreased [None]
  - Anxiety [None]
  - Gait disturbance [None]
  - Muscle spasms [None]
